FAERS Safety Report 22061210 (Version 1)
Quarter: 2023Q1

REPORT INFORMATION
  Report Type: Spontaneous
  Country: GB (occurrence: GB)
  Receive Date: 20230303
  Receipt Date: 20230303
  Transmission Date: 20230417
  Serious: Yes (Other)
  Sender: FDA-Public Use
  Company Number: GB-MHRA-MED-202302221100312650-MVNRJ

PATIENT
  Sex: Female

DRUGS (1)
  1. VENLAFAXINE [Suspect]
     Active Substance: VENLAFAXINE HYDROCHLORIDE
     Indication: Product used for unknown indication
     Dosage: 37.5MG; ;
     Route: 065

REACTIONS (9)
  - Urinary tract disorder [Unknown]
  - Mydriasis [Unknown]
  - Decreased appetite [Unknown]
  - Tremor [Unknown]
  - Pyrexia [Unknown]
  - Ageusia [Unknown]
  - Sensory loss [Unknown]
  - Night sweats [Unknown]
  - Hallucinations, mixed [Unknown]
